FAERS Safety Report 6896171-8 (Version None)
Quarter: 2010Q3

REPORT INFORMATION
  Report Type: 
  Country: None (occurrence: None)
  Receive Date: 20100802
  Receipt Date: 20100722
  Transmission Date: 20110219
  Serious: Yes (Hospitalization)
  Sender: FDA-Public Use
  Company Number: A0867191A

PATIENT
  Age: 45 Year
  Sex: Female
  Weight: 159.1 kg

DRUGS (13)
  1. AVANDIA [Suspect]
     Indication: DIABETES MELLITUS
     Route: 048
     Dates: start: 20010101, end: 20071101
  2. AVANDAMET [Suspect]
     Indication: DIABETES MELLITUS
     Route: 048
     Dates: start: 20031001, end: 20050101
  3. METFORMIN HCL [Concomitant]
  4. LOTREL [Concomitant]
  5. AMBIEN [Concomitant]
  6. POTASSIUM [Concomitant]
  7. LASIX [Concomitant]
  8. ASPIRIN [Concomitant]
  9. SEROQUEL [Concomitant]
  10. CLONAZEPAM [Concomitant]
  11. SENNA [Concomitant]
  12. ZANTAC [Concomitant]
  13. CYMBALTA [Concomitant]

REACTIONS (8)
  - AORTIC DILATATION [None]
  - ARTERIOSCLEROSIS CORONARY ARTERY [None]
  - CARDIAC FAILURE CONGESTIVE [None]
  - CARDIOMYOPATHY [None]
  - HYPERTENSION [None]
  - JOINT SPRAIN [None]
  - LEFT VENTRICULAR HYPERTROPHY [None]
  - PERICARDIAL EFFUSION [None]
